FAERS Safety Report 7466832-0 (Version None)
Quarter: 2011Q2

REPORT INFORMATION
  Report Type: 
  Country: None (occurrence: None)
  Receive Date: 20110505
  Receipt Date: 20110505
  Transmission Date: 20111010
  Serious: No
  Sender: FDA-Public Use
  Company Number: None

PATIENT
  Sex: Female

DRUGS (1)
  1. DIVALPROEX SODIUM [Suspect]
     Dosage: 500MG BID PO
     Route: 048
     Dates: start: 20110411

REACTIONS (1)
  - PRODUCT SOLUBILITY ABNORMAL [None]
